FAERS Safety Report 21573087 (Version 1)
Quarter: 2022Q4

REPORT INFORMATION
  Report Type: Spontaneous
  Country: GB (occurrence: GB)
  Receive Date: 20221109
  Receipt Date: 20221109
  Transmission Date: 20230112
  Serious: Yes (Life-Threatening, Hospitalization, Other)
  Sender: FDA-Public Use
  Company Number: None

PATIENT
  Age: 73 Year
  Sex: Female
  Weight: 55 kg

DRUGS (6)
  1. PAXLOVID [Suspect]
     Active Substance: NIRMATRELVIR\RITONAVIR
     Indication: Coronavirus infection
     Dosage: 30 MG
     Dates: start: 20221002, end: 20221006
  2. PREDNISOLONE ACCORD [Concomitant]
     Indication: Renal vasculitis
  3. CALCIUM CARBONATE\CHOLECALCIFEROL [Concomitant]
     Active Substance: CALCIUM CARBONATE\CHOLECALCIFEROL
  4. RAMIPRIL [Concomitant]
     Active Substance: RAMIPRIL
     Indication: Blood sodium
  5. FEXOFENADINE [Concomitant]
     Active Substance: FEXOFENADINE HYDROCHLORIDE
     Indication: Abdominal discomfort
     Dosage: CHANELLE MED UK FEXOFENADINE
  6. MYCOPHENOLATE MOFETIL [Concomitant]
     Active Substance: MYCOPHENOLATE MOFETIL
     Indication: Immunosuppressant drug therapy
     Dosage: TILLOMED LABS

REACTIONS (7)
  - Hyponatraemia [Recovering/Resolving]
  - Malaise [Unknown]
  - Decreased appetite [Unknown]
  - Thirst decreased [Unknown]
  - Disorientation [Unknown]
  - Gait disturbance [Unknown]
  - Flatulence [Unknown]

NARRATIVE: CASE EVENT DATE: 20221001
